FAERS Safety Report 8873228 (Version 1)
Quarter: 2012Q4

REPORT INFORMATION
  Report Type: 
  Country: US (occurrence: US)
  Receive Date: 20121023
  Receipt Date: 20121023
  Transmission Date: 20130627
  Serious: Yes (Hospitalization)
  Sender: FDA-Public Use
  Company Number: US-ASTELLAS-2012US005230

PATIENT
  Age: 77 Year
  Sex: Female
  Weight: 87 kg

DRUGS (1)
  1. PROGRAF [Suspect]
     Indication: LIVER TRANSPLANT
     Dosage: 4 mg, bid
     Route: 048
     Dates: start: 19980517

REACTIONS (2)
  - Jaundice [Unknown]
  - Fatigue [Unknown]
